FAERS Safety Report 4533352-2 (Version None)
Quarter: 2004Q4

REPORT INFORMATION
  Report Type: 
  Country: None (occurrence: None)
  Receive Date: 20041210
  Receipt Date: 20040809
  Transmission Date: 20050328
  Serious: No
  Sender: FDA-Public Use
  Company Number: A03200402738

PATIENT
  Sex: Male

DRUGS (1)
  1. ELOXATIN [Suspect]
     Indication: CARCINOMA
     Dosage: INTRAVENOUS NOS
     Route: 042

REACTIONS (2)
  - DRUG INEFFECTIVE [None]
  - UNEXPECTED THERAPEUTIC DRUG EFFECT [None]
